FAERS Safety Report 6186604-7 (Version None)
Quarter: 2009Q2

REPORT INFORMATION
  Report Type: 
  Country: None (occurrence: None)
  Receive Date: 20090507
  Receipt Date: 20090507
  Transmission Date: 20091009
  Serious: No
  Sender: FDA-Public Use
  Company Number: None

PATIENT
  Age: 66 Year
  Sex: Female

DRUGS (1)
  1. CATAPRES-TTS-2 [Suspect]
     Indication: BLOOD PRESSURE
     Dosage: APPLY 1 PATCH EVERY WEEK

REACTIONS (3)
  - DEVICE ADHESION ISSUE [None]
  - INCORRECT DOSE ADMINISTERED [None]
  - PRODUCT QUALITY ISSUE [None]
